FAERS Safety Report 9609375 (Version 1)
Quarter: 2013Q4

REPORT INFORMATION
  Report Type: Spontaneous
  Country: US (occurrence: None)
  Receive Date: 20131007
  Receipt Date: 20131007
  Transmission Date: 20140711
  Serious: Yes (Hospitalization, Disabling)
  Sender: FDA-Public Use
  Company Number: None

PATIENT
  Age: 89 Year
  Sex: Female
  Weight: 57.1 kg

DRUGS (2)
  1. CLOPIDOGREL [Suspect]
     Route: 048
  2. ASPIRIN [Suspect]
     Route: 048

REACTIONS (3)
  - Fall [None]
  - Haemorrhage intracranial [None]
  - Subdural haematoma [None]
